FAERS Safety Report 7643797-X (Version None)
Quarter: 2011Q3

REPORT INFORMATION
  Report Type: 
  Country: None (occurrence: None)
  Receive Date: 20110722
  Receipt Date: 20110713
  Transmission Date: 20111222
  Serious: Yes (Disabling)
  Sender: FDA-Public Use
  Company Number: GGEL20110600689

PATIENT
  Sex: Male

DRUGS (6)
  1. RASAGILINE [Concomitant]
  2. FENTANYL [Concomitant]
  3. PRAMIPEXOLE DIHYDROCHLORIDE [Suspect]
     Indication: PARKINSON'S DISEASE
     Dosage: ORAL USE
     Route: 048
  4. DIAZEPAM [Concomitant]
  5. CO-CARELDOPA (CARIDOPA, LEVODOPA) [Concomitant]
  6. TRAMADOL HCL [Concomitant]

REACTIONS (3)
  - DELUSION [None]
  - FAMILY STRESS [None]
  - DISINHIBITION [None]
